FAERS Safety Report 12767800 (Version 1)
Quarter: 2016Q3

REPORT INFORMATION
  Report Type: Spontaneous
  Country: IE (occurrence: IE)
  Receive Date: 20160921
  Receipt Date: 20160921
  Transmission Date: 20161109
  Serious: Yes (Other)
  Sender: FDA-Public Use
  Company Number: PHHY2016IE127256

PATIENT
  Age: 62 Year
  Sex: Male

DRUGS (16)
  1. LANSOPRAZOLE. [Interacting]
     Active Substance: LANSOPRAZOLE
     Dosage: 15 MG, AS REQUIRED
     Route: 065
  2. PRAVASTATIN. [Concomitant]
     Active Substance: PRAVASTATIN
     Indication: ANTIRETROVIRAL THERAPY
     Dosage: 40 MG, QD
     Route: 065
  3. LANSOPRAZOLE. [Suspect]
     Active Substance: LANSOPRAZOLE
     Indication: PRODUCT USED FOR UNKNOWN INDICATION
     Dosage: 30 MG, AS REQUIRED
     Route: 065
  4. TADALAFIL [Concomitant]
     Active Substance: TADALAFIL
     Indication: ANTIRETROVIRAL THERAPY
     Dosage: 10 MG, AS REQUIRED
     Route: 065
  5. PEGYLATED INTERFERON ALFA-2A [Concomitant]
     Active Substance: PEGINTERFERON ALFA-2A
     Indication: PRODUCT USED FOR UNKNOWN INDICATION
     Route: 065
  6. LEDIPASVIR [Interacting]
     Active Substance: LEDIPASVIR
     Indication: ANTIRETROVIRAL THERAPY
     Route: 065
  7. ETRAVIRINE [Concomitant]
     Active Substance: ETRAVIRINE
     Indication: ANTIRETROVIRAL THERAPY
     Dosage: 200 MG, BID
     Route: 065
  8. RIBAVIRIN. [Interacting]
     Active Substance: RIBAVIRIN
     Indication: ANTIRETROVIRAL THERAPY
     Dosage: 1000 MG, UNK
     Route: 065
  9. RALTEGRAVIR. [Concomitant]
     Active Substance: RALTEGRAVIR
     Indication: ANTIRETROVIRAL THERAPY
     Dosage: 400 MG, BID
     Route: 065
  10. RITONAVIR. [Concomitant]
     Active Substance: RITONAVIR
     Indication: ANTIRETROVIRAL THERAPY
     Dosage: 100 MG, BID
     Route: 065
  11. RIBAVIRIN. [Interacting]
     Active Substance: RIBAVIRIN
     Dosage: 800 MG, UNK
     Route: 065
  12. PROPANOLOL [Concomitant]
     Active Substance: PROPRANOLOL HYDROCHLORIDE
     Indication: ANTIRETROVIRAL THERAPY
     Dosage: 20 MG, BID
     Route: 065
  13. SOFOSBUVIR [Interacting]
     Active Substance: SOFOSBUVIR
     Indication: ANTIRETROVIRAL THERAPY
     Route: 065
  14. TENOFOVIR [Concomitant]
     Active Substance: TENOFOVIR
     Indication: ANTIRETROVIRAL THERAPY
     Dosage: 245 MG, QD
     Route: 065
  15. DARUNAVIR [Concomitant]
     Active Substance: DARUNAVIR
     Indication: ANTIRETROVIRAL THERAPY
     Dosage: 600 MG, BID
     Route: 065
  16. VALACICLOVIR [Concomitant]
     Active Substance: VALACYCLOVIR HYDROCHLORIDE
     Indication: ANTIRETROVIRAL THERAPY
     Dosage: 500 MG, QD
     Route: 065

REACTIONS (2)
  - Drug interaction [Unknown]
  - Treatment failure [Unknown]
